FAERS Safety Report 9921455 (Version 1)
Quarter: 2014Q1

REPORT INFORMATION
  Report Type: Spontaneous
  Country: CA (occurrence: CA)
  Receive Date: 20140225
  Receipt Date: 20140225
  Transmission Date: 20141002
  Serious: Yes (Other)
  Sender: FDA-Public Use
  Company Number: CA-ROCHE-1355150

PATIENT
  Age: 8 Year
  Sex: Female

DRUGS (2)
  1. TAMIFLU [Suspect]
     Indication: INFLUENZA
     Route: 048
     Dates: start: 20140210, end: 20140215
  2. ADVAIR [Concomitant]
     Indication: ASTHMA

REACTIONS (1)
  - Hallucination [Not Recovered/Not Resolved]
